FAERS Safety Report 9343318 (Version 1)
Quarter: 2013Q2

REPORT INFORMATION
  Report Type: Spontaneous
  Country: FR (occurrence: FR)
  Receive Date: 20130612
  Receipt Date: 20130612
  Transmission Date: 20140414
  Serious: Yes (Hospitalization)
  Sender: FDA-Public Use
  Company Number: FR-B.I. PHARMACEUTICALS,INC./RIDGEFIELD-2013-FF-01606FF

PATIENT
  Age: 86 Year
  Sex: Female

DRUGS (9)
  1. PRADAXA [Suspect]
     Indication: ATRIAL FIBRILLATION
     Dosage: 220 MG
     Route: 048
     Dates: start: 201301, end: 20130309
  2. LEVEMIR [Concomitant]
     Indication: TYPE 2 DIABETES MELLITUS
     Dosage: 10 U
     Route: 058
  3. TAHOR [Concomitant]
     Indication: DYSLIPIDAEMIA
     Dosage: 20 MG
     Route: 048
  4. NOVONORM [Concomitant]
     Indication: TYPE 2 DIABETES MELLITUS
     Dosage: 6 MG
     Route: 048
  5. ZYLORIC [Concomitant]
     Indication: GOUT
     Dosage: 100 MG
     Route: 048
  6. INEXIUM [Concomitant]
     Indication: GASTROOESOPHAGEAL REFLUX DISEASE
     Dosage: 20 MG
     Route: 048
  7. TEMERIT [Concomitant]
     Indication: HYPERTENSION
     Dosage: 7.5 MG
     Route: 048
  8. LASILIX FAIBLE [Concomitant]
     Indication: HYPERTENSION
     Dosage: 20 MG
     Route: 048
  9. DIFFU K [Concomitant]
     Indication: HYPOKALAEMIA
     Dosage: 600 MG
     Route: 048

REACTIONS (1)
  - Transient ischaemic attack [Recovered/Resolved]
